FAERS Safety Report 17823346 (Version 1)
Quarter: 2020Q2

REPORT INFORMATION
  Report Type: Spontaneous
  Country: US (occurrence: US)
  Receive Date: 20200522
  Receipt Date: 20200522
  Transmission Date: 20200714
  Serious: Yes (Other)
  Sender: FDA-Public Use
  Company Number: None

PATIENT
  Age: 86 Year
  Sex: Male
  Weight: 77.4 kg

DRUGS (5)
  1. ATENOLOL 25MG [Concomitant]
     Active Substance: ATENOLOL
  2. ROSUVASTATIN 10MG [Concomitant]
     Active Substance: ROSUVASTATIN
  3. PREDNISOLONE ACETATE OPHTHALMIC 1% [Suspect]
     Active Substance: PREDNISOLONE ACETATE
     Indication: ANTIINFLAMMATORY THERAPY
     Dates: start: 20200102, end: 20200517
  4. PRESERVISION AREDS 2 [Concomitant]
     Active Substance: MINERALS\VITAMINS
  5. SERTRALINE HYDROCHLORID 100MG [Concomitant]

REACTIONS (1)
  - Visual impairment [None]

NARRATIVE: CASE EVENT DATE: 20200104
